FAERS Safety Report 24620482 (Version 1)
Quarter: 2024Q4

REPORT INFORMATION
  Report Type: Spontaneous
  Country: CA (occurrence: CA)
  Receive Date: 20241114
  Receipt Date: 20241114
  Transmission Date: 20250115
  Serious: Yes (Other)
  Sender: REGENERON
  Company Number: CA-ULTRAGENYX PHARMACEUTICAL INC.-CA-UGX-24-02126

PATIENT
  Age: 45 Year
  Sex: Female

DRUGS (16)
  1. EVKEEZA [Suspect]
     Active Substance: EVINACUMAB-DGNB
     Indication: Type IIa hyperlipidaemia
     Dosage: UNK, INJECTION
     Route: 058
  2. EVKEEZA [Suspect]
     Active Substance: EVINACUMAB-DGNB
     Dosage: UNK, INJECTION
     Route: 058
  3. EVKEEZA [Suspect]
     Active Substance: EVINACUMAB-DGNB
     Dosage: 15.0 MILLIGRAM/KILOGRAM, INJECTION
     Route: 042
  4. EVKEEZA [Suspect]
     Active Substance: EVINACUMAB-DGNB
     Dosage: UNK, INJECTION
     Route: 042
  5. ATORVASTATIN [Suspect]
     Active Substance: ATORVASTATIN
     Indication: Type IIa hyperlipidaemia
     Dosage: UNK
  6. ATORVASTATIN [Suspect]
     Active Substance: ATORVASTATIN
     Dosage: UNK UNK, QD (1 EVERY 1 DAYS)
  7. EZETIMIBE [Suspect]
     Active Substance: EZETIMIBE
     Indication: Type IIa hyperlipidaemia
     Dosage: UNK
  8. EZETIMIBE [Suspect]
     Active Substance: EZETIMIBE
     Dosage: UNK, QD (1 EVERY 1 DAYS)
  9. LOMITAPIDE [Suspect]
     Active Substance: LOMITAPIDE
     Indication: Type IIa hyperlipidaemia
     Dosage: UNK
  10. LOMITAPIDE [Suspect]
     Active Substance: LOMITAPIDE
     Dosage: UNK
  11. LOMITAPIDE [Suspect]
     Active Substance: LOMITAPIDE
     Dosage: UNK
  12. LOMITAPIDE [Suspect]
     Active Substance: LOMITAPIDE
     Dosage: UNK
  13. LOMITAPIDE [Suspect]
     Active Substance: LOMITAPIDE
     Dosage: 5 MILLIGRAM
  14. LOMITAPIDE [Suspect]
     Active Substance: LOMITAPIDE
     Dosage: 20 MILLIGRAM
  15. ROSUVASTATIN [Suspect]
     Active Substance: ROSUVASTATIN
     Indication: Type IIa hyperlipidaemia
     Dosage: UNK, QD (1 EVERY 1 DAYS)
  16. ROSUVASTATIN [Suspect]
     Active Substance: ROSUVASTATIN
     Dosage: UNK

REACTIONS (4)
  - Hepatic steatosis [Recovering/Resolving]
  - Diarrhoea [Recovering/Resolving]
  - International normalised ratio increased [Recovering/Resolving]
  - Nausea [Recovering/Resolving]
